FAERS Safety Report 5981247-X (Version None)
Quarter: 2008Q4

REPORT INFORMATION
  Report Type: 
  Country: None (occurrence: None)
  Receive Date: 20081205
  Receipt Date: 20081126
  Transmission Date: 20090506
  Serious: Yes (Hospitalization)
  Sender: FDA-Public Use
  Company Number: FR-SANOFI-SYNTHELABO-A02200803565

PATIENT
  Sex: Female

DRUGS (4)
  1. FLUOROURACIL [Concomitant]
     Route: 040
     Dates: start: 20080318, end: 20080318
  2. FLUOROURACIL [Concomitant]
     Route: 041
     Dates: start: 20080318, end: 20080318
  3. LEUCOVORIN CALCIUM [Concomitant]
     Route: 041
     Dates: start: 20080318, end: 20080318
  4. ELOXATIN [Suspect]
     Indication: COLORECTAL CANCER
     Route: 041
     Dates: start: 20080318, end: 20080318

REACTIONS (3)
  - CLONUS [None]
  - MALAISE [None]
  - URINARY INCONTINENCE [None]
